FAERS Safety Report 25369084 (Version 2)
Quarter: 2025Q2

REPORT INFORMATION
  Report Type: Report from Study
  Country: CA (occurrence: CA)
  Receive Date: 20250528
  Receipt Date: 20250602
  Transmission Date: 20250717
  Serious: Yes (Hospitalization)
  Sender: OTSUKA
  Company Number: CA-MMM-Otsuka-SQO3ITVD

PATIENT
  Age: 67 Year
  Sex: Male

DRUGS (1)
  1. TOLVAPTAN [Suspect]
     Active Substance: TOLVAPTAN
     Indication: Congenital cystic kidney disease
     Dosage: 60 MG, DAILY
     Route: 048
     Dates: start: 20230801

REACTIONS (6)
  - Acute kidney injury [Recovered/Resolved]
  - Blood bilirubin increased [Recovered/Resolved]
  - Renal cyst haemorrhage [Recovered/Resolved]
  - Renal cyst infection [Recovered/Resolved]
  - Escherichia urinary tract infection [Recovered/Resolved]
  - Haemoglobin decreased [Recovering/Resolving]

NARRATIVE: CASE EVENT DATE: 20250120
